FAERS Safety Report 18245985 (Version 1)
Quarter: 2020Q3

REPORT INFORMATION
  Report Type: Spontaneous
  Country: US (occurrence: US)
  Receive Date: 20200908
  Receipt Date: 20200908
  Transmission Date: 20201103
  Serious: Yes (Hospitalization)
  Sender: FDA-Public Use
  Company Number: None

PATIENT
  Age: 59 Year
  Sex: Female

DRUGS (23)
  1. ALLOPURINOL. [Concomitant]
     Active Substance: ALLOPURINOL
  2. DRONABINOL. [Concomitant]
     Active Substance: DRONABINOL
  3. PROGRAF [Concomitant]
     Active Substance: TACROLIMUS
  4. SULFAMETHAZ [Concomitant]
  5. VITAMIN D [Concomitant]
     Active Substance: VITAMIN D NOS
  6. COUMADIN [Concomitant]
     Active Substance: WARFARIN SODIUM
  7. DEXILANT [Concomitant]
     Active Substance: DEXLANSOPRAZOLE
  8. ELIQUIS [Concomitant]
     Active Substance: APIXABAN
  9. FOLIC ACID. [Concomitant]
     Active Substance: FOLIC ACID
  10. MYCOPHENOLIC 360MG DR TAB [Suspect]
     Active Substance: MYCOPHENOLIC ACID
     Indication: RENAL TRANSPLANT
     Route: 048
     Dates: start: 20181220
  11. ASPIRIN EC [Concomitant]
     Active Substance: ASPIRIN
  12. ASPIRIN CHLD [Concomitant]
  13. ITRACONAZOLE. [Concomitant]
     Active Substance: ITRACONAZOLE
  14. LEVOXYL [Concomitant]
     Active Substance: LEVOTHYROXINE SODIUM
  15. PREMARIN [Concomitant]
     Active Substance: ESTROGENS, CONJUGATED
  16. SOD BICARB [Concomitant]
  17. FUROSEMIDE. [Concomitant]
     Active Substance: FUROSEMIDE
  18. IMURAN [Concomitant]
     Active Substance: AZATHIOPRINE
  19. PLAVIX [Concomitant]
     Active Substance: CLOPIDOGREL BISULFATE
  20. TACROLIMUS 1MG CAP [Suspect]
     Active Substance: TACROLIMUS
     Indication: RENAL TRANSPLANT
     Dosage: ?          OTHER FREQUENCY:QAM ;?
     Route: 048
     Dates: start: 20140129
  21. BRILINTA [Concomitant]
     Active Substance: TICAGRELOR
  22. METOPROLOL. [Concomitant]
     Active Substance: METOPROLOL
  23. PREDNISONE. [Concomitant]
     Active Substance: PREDNISONE

REACTIONS (1)
  - Dehydration [None]

NARRATIVE: CASE EVENT DATE: 20200818
